FAERS Safety Report 4610310-0 (Version None)
Quarter: 2005Q1

REPORT INFORMATION
  Report Type: 
  Country: None (occurrence: None)
  Receive Date: 20050314
  Receipt Date: 20050307
  Transmission Date: 20050727
  Serious: Yes (Other)
  Sender: FDA-Public Use
  Company Number: S05-USA-00618-01

PATIENT
  Age: 81 Year
  Sex: Male

DRUGS (7)
  1. LEXAPRO [Suspect]
     Indication: DEPRESSION
     Dosage: 10 MG QD PO
     Route: 048
     Dates: start: 20050121, end: 20050126
  2. ASPIRIN [Suspect]
     Dosage: 81 MG QD PO
     Route: 048
     Dates: start: 19970101, end: 20050126
  3. ZETIA [Concomitant]
  4. XALATAN [Concomitant]
  5. MULTI-VITAMIN [Concomitant]
  6. OMEGA3 (FISH OIL) [Concomitant]
  7. POTASSIUM CHLORIDE [Concomitant]

REACTIONS (7)
  - ABDOMINAL DISCOMFORT [None]
  - BILIARY DILATATION [None]
  - DEPRESSION [None]
  - DUODENAL STENOSIS [None]
  - FAECAL OCCULT BLOOD POSITIVE [None]
  - MELAENA [None]
  - PANCREATIC NEOPLASM [None]
